FAERS Safety Report 21904014 (Version 5)
Quarter: 2023Q1

REPORT INFORMATION
  Report Type: Spontaneous
  Country: US (occurrence: US)
  Receive Date: 20230124
  Receipt Date: 20230321
  Transmission Date: 20230418
  Serious: Yes (Other)
  Sender: FDA-Public Use
  Company Number: US-PFIZER INC-202300033684

PATIENT
  Age: 73 Year
  Sex: Female

DRUGS (3)
  1. XELJANZ XR [Suspect]
     Active Substance: TOFACITINIB CITRATE
     Dosage: 22 MG
     Route: 048
  2. XELJANZ XR [Suspect]
     Active Substance: TOFACITINIB CITRATE
     Dosage: 22 MG, 1X/DAY, (TAKE 1 TABLET BY MOUTH ONCE A DAY)
     Route: 048
     Dates: start: 20230105
  3. XELJANZ XR [Suspect]
     Active Substance: TOFACITINIB CITRATE
     Dosage: 22 MG, 1X/DAY, (TAKE 1 TABLET BY MOUTH ONCE A DAY)
     Route: 048
     Dates: start: 20230113

REACTIONS (3)
  - Pancreatitis [Unknown]
  - Arthritis [Unknown]
  - Nasopharyngitis [Unknown]
